FAERS Safety Report 20193446 (Version 1)
Quarter: 2021Q4

REPORT INFORMATION
  Report Type: Other
  Country: CA (occurrence: CA)
  Receive Date: 20211216
  Receipt Date: 20211216
  Transmission Date: 20220303
  Serious: Yes (Hospitalization, Other)
  Sender: FDA-Public Use
  Company Number: CA-ASTELLAS-2021US047827

PATIENT
  Age: 59 Year
  Sex: Female

DRUGS (2)
  1. TACROLIMUS [Suspect]
     Active Substance: TACROLIMUS
     Indication: Prophylaxis against graft versus host disease
     Route: 065
  2. TACROLIMUS [Suspect]
     Active Substance: TACROLIMUS
     Indication: Allogenic stem cell transplantation
     Route: 065

REACTIONS (6)
  - Chemotherapeutic drug level below therapeutic [Unknown]
  - Headache [Unknown]
  - Posterior reversible encephalopathy syndrome [Unknown]
  - Vision blurred [Unknown]
  - Product use in unapproved indication [Unknown]
  - Off label use [Unknown]
